FAERS Safety Report 19440002 (Version 1)
Quarter: 2021Q2

REPORT INFORMATION
  Report Type: Spontaneous
  Country: US (occurrence: US)
  Receive Date: 20210620
  Receipt Date: 20210620
  Transmission Date: 20210717
  Serious: Yes (Life-Threatening, Hospitalization, Other)
  Sender: FDA-Public Use
  Company Number: US-EMCURE PHARMACEUTICALS LTD-2021-EPL-001877

PATIENT
  Age: 49 Year
  Sex: Male
  Weight: 81.8 kg

DRUGS (12)
  1. DILTIAZEM. [Interacting]
     Active Substance: DILTIAZEM
     Dosage: CONTROLLED DELIVERY
     Route: 048
  2. DABIGATRAN [Concomitant]
     Active Substance: DABIGATRAN
  3. IBUPROFEN. [Concomitant]
     Active Substance: IBUPROFEN
  4. ROSUVASTATIN. [Concomitant]
     Active Substance: ROSUVASTATIN
  5. ONDANSETRON [Interacting]
     Active Substance: ONDANSETRON
     Indication: VOMITING
     Dosage: 4 MILLIGRAM, PER 12 HOUR
  6. FUROSEMIDE. [Suspect]
     Active Substance: FUROSEMIDE
     Route: 048
  7. FAMOTIDINE. [Interacting]
     Active Substance: FAMOTIDINE
     Indication: VOMITING
     Dosage: 20 MILLIGRAM, OER 24 HOURS
     Route: 042
  8. FOLIC ACID. [Concomitant]
     Active Substance: FOLIC ACID
  9. DOFETILIDE. [Interacting]
     Active Substance: DOFETILIDE
     Dosage: VIAL, 12 PER YEAR
     Route: 048
  10. LORAZEPAM. [Concomitant]
     Active Substance: LORAZEPAM
     Indication: ALCOHOL WITHDRAWAL SYNDROME
     Route: 042
  11. AMIODARONE [Concomitant]
     Active Substance: AMIODARONE
  12. CASSIA [Concomitant]

REACTIONS (12)
  - Drug interaction [Recovering/Resolving]
  - Cardiac arrest [Recovering/Resolving]
  - Bundle branch block right [Recovering/Resolving]
  - Drug level increased [Recovering/Resolving]
  - Electrocardiogram ST segment elevation [Recovering/Resolving]
  - Electrocardiogram T wave biphasic [Recovering/Resolving]
  - Electrocardiogram QT prolonged [Recovering/Resolving]
  - Ventricular fibrillation [Recovering/Resolving]
  - Condition aggravated [Recovering/Resolving]
  - Accidental overdose [Recovering/Resolving]
  - Hypokalaemia [Recovering/Resolving]
  - Product prescribing error [Recovering/Resolving]
